FAERS Safety Report 4601239-2 (Version None)
Quarter: 2005Q1

REPORT INFORMATION
  Report Type: 
  Country: None (occurrence: None)
  Receive Date: 20050304
  Receipt Date: 20050224
  Transmission Date: 20050727
  Serious: Yes (Other)
  Sender: FDA-Public Use
  Company Number: 2005UW00722

PATIENT
  Age: 75 Year
  Sex: Female
  Weight: 92.0802 kg

DRUGS (14)
  1. ATACAND [Suspect]
     Indication: HYPERTENSION
     Dosage: 4 MG QD PO
     Route: 048
     Dates: start: 20050127
  2. ATACAND [Suspect]
     Indication: HYPERTENSION
     Dosage: 8 MG QD PO
     Route: 048
     Dates: start: 20050106
  3. ASPIRIN [Concomitant]
  4. CYANOCOBALAMIN [Concomitant]
  5. LACTULOSE [Concomitant]
  6. LAC-HYDRIN [Concomitant]
  7. HYDROCHLOROTHIAZIDE [Concomitant]
  8. HUMALOG [Concomitant]
  9. AMARYL [Concomitant]
  10. AVANDIA [Concomitant]
  11. FLEXERIL [Concomitant]
  12. ATIVAN [Concomitant]
  13. COREG [Concomitant]
  14. VALIUM [Concomitant]

REACTIONS (4)
  - CARDIAC FAILURE CONGESTIVE [None]
  - HEADACHE [None]
  - PANIC ATTACK [None]
  - TREATMENT NONCOMPLIANCE [None]
